FAERS Safety Report 7570137-7 (Version None)
Quarter: 2011Q2

REPORT INFORMATION
  Report Type: 
  Country: None (occurrence: None)
  Receive Date: 20110624
  Receipt Date: 20110620
  Transmission Date: 20111010
  Serious: Yes (Hospitalization)
  Sender: FDA-Public Use
  Company Number: PL-SANOFI-AVENTIS-2011SA038715

PATIENT
  Age: 32 Year
  Sex: Female
  Weight: 52 kg

DRUGS (1)
  1. ARAVA [Suspect]
     Route: 048
     Dates: start: 20110201, end: 20110401

REACTIONS (1)
  - LIVER FUNCTION TEST ABNORMAL [None]
